FAERS Safety Report 4621787-9 (Version None)
Quarter: 2005Q1

REPORT INFORMATION
  Report Type: 
  Country: None (occurrence: None)
  Receive Date: 20050329
  Receipt Date: 20040924
  Transmission Date: 20050727
  Serious: Yes (Life-Threatening, Hospitalization)
  Sender: FDA-Public Use
  Company Number: ES-ROCHE-381433

PATIENT
  Age: 68 Year
  Sex: Male
  Weight: 77.5 kg

DRUGS (9)
  1. CAPECITABINE [Suspect]
     Dosage: ON DAYS ONE TO FOURTEEN OF A TWENTY-ONE DAY CYCLE
     Route: 048
     Dates: start: 20040906, end: 20040916
  2. CAPECITABINE [Suspect]
     Route: 048
     Dates: start: 20041110, end: 20041119
  3. CAPECITABINE [Suspect]
     Route: 048
     Dates: start: 20041215, end: 20050126
  4. OXALIPLATIN [Suspect]
     Route: 042
     Dates: start: 20040906, end: 20040906
  5. OXALIPLATIN [Suspect]
     Route: 042
     Dates: start: 20041110, end: 20050209
  6. ENOXAPARINE [Suspect]
     Indication: DEEP VEIN THROMBOSIS
     Route: 058
     Dates: start: 20040907, end: 20040915
  7. ENOXAPARINE [Suspect]
     Route: 058
     Dates: start: 20040915
  8. ENOXAPARINE [Suspect]
     Route: 058
     Dates: start: 20040922, end: 20041118
  9. BISOPROLOL FUMARATE [Concomitant]
     Indication: HYPERTENSION
     Route: 048
     Dates: start: 19930615

REACTIONS (4)
  - CEREBRAL HAEMATOMA [None]
  - FALL [None]
  - HAEMATURIA [None]
  - SYNCOPE [None]
